FAERS Safety Report 9060051 (Version 1)
Quarter: 2013Q4

REPORT INFORMATION
  Report Type: Spontaneous
  Country: US (occurrence: None)
  Receive Date: 20130207
  Receipt Date: 20130207
  Transmission Date: 20140711
  Serious: Yes (Hospitalization, Other)
  Sender: FDA-Public Use
  Company Number: None

PATIENT
  Age: 6 Year
  Sex: Male
  Weight: 24.3 kg

DRUGS (4)
  1. VORINOSTAT [Suspect]
     Indication: NEUROBLASTOMA
     Route: 048
     Dates: start: 20121203, end: 20121217
  2. I-MIBG [Suspect]
     Indication: NEUROBLASTOMA
     Route: 042
     Dates: start: 20121205
  3. NEUPOGEN [Concomitant]
  4. POTASSIUM IODIDE [Concomitant]

REACTIONS (6)
  - Haemorrhage [None]
  - Thrombocytopenia [None]
  - Tongue haemorrhage [None]
  - Blood blister [None]
  - Petechiae [None]
  - Contusion [None]
